FAERS Safety Report 15761989 (Version 2)
Quarter: 2019Q1

REPORT INFORMATION
  Report Type: Spontaneous
  Country: FR (occurrence: FR)
  Receive Date: 20181226
  Receipt Date: 20190220
  Transmission Date: 20190417
  Serious: Yes (Other)
  Sender: FDA-Public Use
  Company Number: FR-MYLANLABS-2018M1094683

PATIENT
  Age: 46 Year
  Sex: Male

DRUGS (5)
  1. PARA-AMINOSALICYLIC ACID [Concomitant]
     Active Substance: AMINOSALICYLIC ACID
     Indication: PULMONARY TUBERCULOSIS
     Dosage: UNK
  2. CLOFAZIMINE [Suspect]
     Active Substance: CLOFAZIMINE
     Indication: PULMONARY TUBERCULOSIS
     Dosage: UNK
  3. AMIKACIN. [Concomitant]
     Active Substance: AMIKACIN
     Indication: PULMONARY TUBERCULOSIS
     Dosage: UNK
  4. MOXIFLOXACIN. [Suspect]
     Active Substance: MOXIFLOXACIN
     Indication: PULMONARY TUBERCULOSIS
     Dosage: DAILY DOSE 800 MG
  5. CYCLOSERINE. [Concomitant]
     Active Substance: CYCLOSERINE
     Indication: PULMONARY TUBERCULOSIS
     Dosage: UNK

REACTIONS (3)
  - Off label use [Unknown]
  - Electrocardiogram QT prolonged [Unknown]
  - Product use in unapproved indication [Unknown]
